FAERS Safety Report 13421803 (Version 6)
Quarter: 2017Q3

REPORT INFORMATION
  Report Type: Spontaneous
  Country: US (occurrence: US)
  Receive Date: 20170410
  Receipt Date: 20170901
  Transmission Date: 20171127
  Serious: Yes (Death, Life-Threatening, Hospitalization, Congenital Anomaly, Other)
  Sender: FDA-Public Use
  Company Number: US-SUN PHARMACEUTICAL INDUSTRIES LTD-2017US-131889

PATIENT
  Age: 4 Year
  Sex: Male

DRUGS (4)
  1. SERTRALINE [Suspect]
     Active Substance: SERTRALINE HYDROCHLORIDE
     Indication: DEPRESSION
     Route: 064
  2. PROGESTERONE. [Suspect]
     Active Substance: PROGESTERONE
     Indication: PROPHYLAXIS
     Dosage: UNK
     Route: 064
  3. ONDANSETRON [Suspect]
     Active Substance: ONDANSETRON
     Indication: VOMITING
     Route: 064
  4. ESCITALOPRAM [Suspect]
     Active Substance: ESCITALOPRAM OXALATE
     Indication: DEPRESSION
     Route: 064

REACTIONS (5)
  - Human herpesvirus 6 infection [Fatal]
  - Cardiac failure [Fatal]
  - Cardiomyopathy [Fatal]
  - Multiple organ dysfunction syndrome [Fatal]
  - Foetal exposure during pregnancy [Unknown]
